FAERS Safety Report 11832124 (Version 1)
Quarter: 2015Q4

REPORT INFORMATION
  Report Type: Spontaneous
  Country: CA (occurrence: CA)
  Receive Date: 20151214
  Receipt Date: 20151214
  Transmission Date: 20160305
  Serious: Yes (Other)
  Sender: FDA-Public Use
  Company Number: CA-TEVA-617751ACC

PATIENT
  Age: 70 Year
  Sex: Female
  Weight: 81.72 kg

DRUGS (4)
  1. CALCIUM [Concomitant]
     Active Substance: CALCIUM
  2. SEX HORMONES AND MODULATORS OF THE GENITAL SYSTEM [Concomitant]
  3. LETROZOLE. [Suspect]
     Active Substance: LETROZOLE
     Indication: NEOPLASM MALIGNANT
     Dosage: 2.5 MILLIGRAM DAILY;
     Route: 048
  4. VITAMIN D [Concomitant]
     Active Substance: CHOLECALCIFEROL

REACTIONS (3)
  - Burning sensation [Recovering/Resolving]
  - Cystitis [Recovering/Resolving]
  - Breast pain [Recovering/Resolving]
